FAERS Safety Report 4960969-3 (Version None)
Quarter: 2006Q2

REPORT INFORMATION
  Report Type: 
  Country: None (occurrence: None)
  Receive Date: 20060403
  Receipt Date: 20051130
  Transmission Date: 20061013
  Serious: Yes (Hospitalization, Disabling)
  Sender: FDA-Public Use
  Company Number: US-SANOFI-SYNTHELABO-A03200503939

PATIENT
  Sex: Male
  Weight: 78 kg

DRUGS (3)
  1. UROXATRAL [Suspect]
     Indication: BENIGN PROSTATIC HYPERPLASIA
     Route: 048
     Dates: start: 20051108, end: 20051109
  2. UROXATRAL [Suspect]
     Indication: NOCTURIA
     Route: 048
     Dates: start: 20051108, end: 20051109
  3. LEVITRA [Concomitant]
     Route: 048
     Dates: start: 20051020, end: 20051021

REACTIONS (13)
  - AORTIC ARTERIOSCLEROSIS [None]
  - APATHY [None]
  - BRADYPHRENIA [None]
  - CEREBRAL INFARCTION [None]
  - CEREBROVASCULAR ACCIDENT [None]
  - CONFUSIONAL STATE [None]
  - DYSPHASIA [None]
  - INFLUENZA LIKE ILLNESS [None]
  - MEMORY IMPAIRMENT [None]
  - MENTAL STATUS CHANGES [None]
  - MITRAL VALVE INCOMPETENCE [None]
  - SINUSITIS [None]
  - TRICUSPID VALVE INCOMPETENCE [None]
